FAERS Safety Report 9410739 (Version 1)
Quarter: 2013Q3

REPORT INFORMATION
  Report Type: Spontaneous
  Country: US (occurrence: US)
  Receive Date: 20130719
  Receipt Date: 20130719
  Transmission Date: 20140515
  Serious: Yes (Other)
  Sender: FDA-Public Use
  Company Number: US-ELI_LILLY_AND_COMPANY-US201307003124

PATIENT
  Sex: Female

DRUGS (5)
  1. CYMBALTA [Suspect]
     Indication: FIBROMYALGIA
     Dosage: 60 MG, QD
  2. MESTINON [Concomitant]
  3. CELLCEPT [Concomitant]
     Dosage: UNK
  4. PERCOCET [Concomitant]
  5. TOVIAZ [Concomitant]

REACTIONS (6)
  - Myasthenia gravis [Unknown]
  - Lichen planus [Recovering/Resolving]
  - Neuropathy peripheral [Unknown]
  - Back pain [Unknown]
  - Pain [Unknown]
  - Drug ineffective [Not Recovered/Not Resolved]
